FAERS Safety Report 22349968 (Version 3)
Quarter: 2023Q2

REPORT INFORMATION
  Report Type: Spontaneous
  Country: BR (occurrence: BR)
  Receive Date: 20230522
  Receipt Date: 20230605
  Transmission Date: 20230721
  Serious: Yes (Hospitalization)
  Sender: FDA-Public Use
  Company Number: BR-009507513-2305BRA006142

PATIENT
  Sex: Male

DRUGS (1)
  1. PEMBROLIZUMAB [Suspect]
     Active Substance: PEMBROLIZUMAB
     Indication: Bladder transitional cell carcinoma
     Dosage: UNK

REACTIONS (4)
  - Bronchospasm [Not Recovered/Not Resolved]
  - Bronchospasm [Unknown]
  - Bronchospasm [Unknown]
  - Product use issue [Unknown]
